FAERS Safety Report 24780236 (Version 1)
Quarter: 2024Q4

REPORT INFORMATION
  Report Type: Spontaneous
  Country: CN (occurrence: CN)
  Receive Date: 20241227
  Receipt Date: 20241227
  Transmission Date: 20250114
  Serious: Yes (Hospitalization)
  Sender: BEIGENE
  Company Number: CN-BEIGENE-BGN-2024-020774

PATIENT

DRUGS (9)
  1. TISLELIZUMAB [Suspect]
     Active Substance: TISLELIZUMAB
     Indication: Lung squamous cell carcinoma stage II
     Dosage: 200 MILLIGRAM, D1
     Dates: start: 20240105, end: 20240105
  2. TISLELIZUMAB [Suspect]
     Active Substance: TISLELIZUMAB
     Indication: Metastases to lymph nodes
     Dosage: 200 MILLIGRAM, D1
     Dates: start: 20240129, end: 20240129
  3. TISLELIZUMAB [Suspect]
     Active Substance: TISLELIZUMAB
     Dosage: 200 MILLIGRAM, D1
     Route: 041
     Dates: start: 20240221
  4. PACLITAXEL [Concomitant]
     Active Substance: PACLITAXEL
     Indication: Lung squamous cell carcinoma stage II
     Dosage: 220 MILLIGRAM, D2
     Dates: start: 20240106, end: 20240106
  5. PACLITAXEL [Concomitant]
     Active Substance: PACLITAXEL
     Indication: Metastases to lymph nodes
     Dosage: 220 MILLIGRAM, D2
     Dates: start: 20240130, end: 20240130
  6. PACLITAXEL [Concomitant]
     Active Substance: PACLITAXEL
     Dosage: 220 MILLIGRAM, D2
     Dates: start: 20240222, end: 20240222
  7. CARBOPLATIN [Concomitant]
     Active Substance: CARBOPLATIN
     Indication: Lung squamous cell carcinoma stage II
     Dosage: 0.45 GRAM, D3
     Dates: start: 20240107, end: 20240107
  8. CARBOPLATIN [Concomitant]
     Active Substance: CARBOPLATIN
     Indication: Metastases to lymph nodes
     Dosage: 0.45 GRAM, D3
     Dates: start: 20240131, end: 20240131
  9. CARBOPLATIN [Concomitant]
     Active Substance: CARBOPLATIN
     Dosage: 0.45 GRAM, D3
     Dates: start: 20240223, end: 20240223

REACTIONS (1)
  - Interstitial lung disease [Recovering/Resolving]

NARRATIVE: CASE EVENT DATE: 20240403
